FAERS Safety Report 12379718 (Version 4)
Quarter: 2016Q3

REPORT INFORMATION
  Report Type: Spontaneous
  Country: GB (occurrence: GB)
  Receive Date: 20160518
  Receipt Date: 20160711
  Transmission Date: 20161109
  Serious: Yes (Other)
  Sender: FDA-Public Use
  Company Number: GB-ROCHE-1723481

PATIENT
  Sex: Female

DRUGS (2)
  1. RAMIPRIL. [Concomitant]
     Active Substance: RAMIPRIL
     Route: 065
  2. HERCEPTIN [Suspect]
     Active Substance: TRASTUZUMAB
     Indication: PRODUCT USED FOR UNKNOWN INDICATION
     Route: 058
     Dates: start: 201509

REACTIONS (16)
  - Hypotension [Unknown]
  - Neuropathy peripheral [Unknown]
  - Blood magnesium decreased [Unknown]
  - Breast haemorrhage [Recovering/Resolving]
  - Nail discolouration [Unknown]
  - Implant site induration [Unknown]
  - Onychoclasis [Unknown]
  - Breast pain [Unknown]
  - Fatigue [Unknown]
  - Nail disorder [Unknown]
  - Diarrhoea [Unknown]
  - Erythema [Unknown]
  - Breast discomfort [Unknown]
  - Joint stiffness [Unknown]
  - Rhinorrhoea [Unknown]
  - Bronchitis [Recovered/Resolved]
